FAERS Safety Report 11977614 (Version 1)
Quarter: 2016Q1

REPORT INFORMATION
  Report Type: Spontaneous
  Country: US (occurrence: US)
  Receive Date: 20160129
  Receipt Date: 20160129
  Transmission Date: 20160526
  Serious: Yes (Other)
  Sender: FDA-Public Use
  Company Number: US-TEVA-628475ACC

PATIENT
  Age: 32 Year
  Sex: Female
  Weight: 90.8 kg

DRUGS (3)
  1. BUSPIRONE [Concomitant]
     Active Substance: BUSPIRONE HYDROCHLORIDE
     Indication: MOOD SWINGS
  2. PARAGARD T 380A [Suspect]
     Active Substance: COPPER
     Indication: CONTRACEPTION
     Dates: start: 20151223, end: 20160119
  3. WELLBUTRIN [Concomitant]
     Active Substance: BUPROPION HYDROCHLORIDE
     Indication: DEPRESSION

REACTIONS (3)
  - Device dislocation [Recovered/Resolved]
  - Dysmenorrhoea [Unknown]
  - Menorrhagia [Unknown]

NARRATIVE: CASE EVENT DATE: 20160115
